FAERS Safety Report 4494244-0 (Version None)
Quarter: 2004Q4

REPORT INFORMATION
  Report Type: 
  Country: None (occurrence: None)
  Receive Date: 20041105
  Receipt Date: 20041103
  Transmission Date: 20050328
  Serious: Yes (Death, Life-Threatening, Disabling)
  Sender: FDA-Public Use
  Company Number: PHBS2004DK14697

PATIENT
  Age: 43 Year
  Sex: Male
  Weight: 90 kg

DRUGS (7)
  1. LEPONEX [Suspect]
     Indication: SCHIZOPHRENIA
     Dosage: 100 MG, QID
     Route: 048
     Dates: end: 20041001
  2. CIPROXIN [Concomitant]
     Indication: GASTROENTERITIS
     Dosage: 750 MG, BID
     Route: 048
  3. CIPROXIN [Concomitant]
     Dosage: 500 MG, BID
     Route: 048
     Dates: start: 20041001
  4. DISIPAL [Concomitant]
     Dosage: 50 MG, QID
     Route: 048
  5. OXAZEPAM [Concomitant]
     Indication: ANXIETY
     Dosage: MAX. 15 MG 4 TIMES DAILY BY NEED
     Route: 048
  6. NOZINAN [Concomitant]
     Dosage: MAX. 50 MG 4 TIMES DAILY BY NEED
     Route: 048
  7. PINEX [Concomitant]
     Dosage: MAX. 750 MG 4 TIMES DAILY BY NEE
     Route: 048

REACTIONS (2)
  - ARRHYTHMIA [None]
  - CARDIAC ARREST [None]
